FAERS Safety Report 14779019 (Version 1)
Quarter: 2018Q2

REPORT INFORMATION
  Report Type: Spontaneous
  Country: US (occurrence: US)
  Receive Date: 20180419
  Receipt Date: 20180419
  Transmission Date: 20180711
  Serious: Yes (Other)
  Sender: FDA-Public Use
  Company Number: US-SA-2018SA044747

PATIENT
  Sex: Female

DRUGS (2)
  1. DULCOEASE [Suspect]
     Active Substance: DOCUSATE SODIUM
     Route: 065
  2. DULCOLAX NOS [Suspect]
     Active Substance: BISACODYL OR DOCUSATE SODIUM
     Route: 065

REACTIONS (3)
  - Abdominal pain upper [Unknown]
  - Faeces hard [Unknown]
  - Drug dependence [Unknown]
